FAERS Safety Report 25665411 (Version 2)
Quarter: 2025Q3

REPORT INFORMATION
  Report Type: Spontaneous
  Country: GB (occurrence: GB)
  Receive Date: 20250811
  Receipt Date: 20250825
  Transmission Date: 20251020
  Serious: Yes (Other)
  Sender: PFIZER
  Company Number: GB-PFM-2025-03742

PATIENT
  Sex: Female
  Weight: 109 kg

DRUGS (9)
  1. BRAFTOVI [Suspect]
     Active Substance: ENCORAFENIB
     Indication: Astrocytoma
     Dosage: 450 MG, 1X/DAY
     Route: 065
     Dates: start: 20250724, end: 20250727
  2. BRAFTOVI [Suspect]
     Active Substance: ENCORAFENIB
     Indication: BRAF V600E mutation positive
     Dosage: 300 MG, QD (1/DAY)
     Route: 065
     Dates: start: 20250731
  3. MEKTOVI [Suspect]
     Active Substance: BINIMETINIB
     Indication: Astrocytoma
     Dosage: 45 MG, 2X/DAY (EVERY 12 HOURS)
     Route: 065
     Dates: start: 20250724, end: 20250727
  4. MEKTOVI [Suspect]
     Active Substance: BINIMETINIB
     Indication: BRAF V600E mutation positive
     Dosage: 30 MG, BID (2/DAY)
     Route: 065
     Dates: start: 20250731
  5. ACETAMINOPHEN [Concomitant]
     Active Substance: ACETAMINOPHEN
     Route: 065
  6. HYDROCORTISONE [Concomitant]
     Active Substance: HYDROCORTISONE
     Route: 065
  7. LEVETRAL [Concomitant]
     Dosage: 750 MG, BID (2/DAY)
     Route: 065
  8. ESTRADIOL [Concomitant]
     Active Substance: ESTRADIOL
     Route: 065
  9. UTROGESTAN [Concomitant]
     Active Substance: PROGESTERONE
     Route: 065

REACTIONS (5)
  - Retinopathy [Recovered/Resolved]
  - Decreased appetite [Recovered/Resolved]
  - Fatigue [Recovered/Resolved]
  - Visual impairment [Recovered/Resolved]
  - Off label use [Unknown]

NARRATIVE: CASE EVENT DATE: 20250724
